FAERS Safety Report 8106223-2 (Version None)
Quarter: 2012Q1

REPORT INFORMATION
  Report Type: 
  Country: None (occurrence: None)
  Receive Date: 20120130
  Receipt Date: 20120119
  Transmission Date: 20120608
  Serious: Yes (Other)
  Sender: FDA-Public Use
  Company Number: 2012SP003903

PATIENT
  Age: 28 Year
  Sex: Male

DRUGS (13)
  1. NOXAFIL [Suspect]
     Indication: INFECTION PROPHYLAXIS
     Dosage: PO
     Route: 048
     Dates: start: 20111117
  2. CYTARABINE [Concomitant]
  3. DAUNORUBICIN [Concomitant]
  4. URSODIOL [Concomitant]
  5. PREDNISOLONE [Concomitant]
  6. PAMIDRONATE DISODIUM [Concomitant]
  7. GANCICLOVIR [Concomitant]
  8. MYCOPHENOLATE MOFETIL [Concomitant]
  9. SULPHAMETOXAZOLE [Concomitant]
  10. TRIMETHOPRIM [Concomitant]
  11. INSULIN [Concomitant]
  12. ACETYLCYSTEINE [Concomitant]
  13. OMEPRAZOLE [Concomitant]

REACTIONS (3)
  - DYSSTASIA [None]
  - PERIPHERAL MOTOR NEUROPATHY [None]
  - AXONAL NEUROPATHY [None]
